FAERS Safety Report 5724907-8 (Version None)
Quarter: 2008Q2

REPORT INFORMATION
  Report Type: 
  Country: None (occurrence: None)
  Receive Date: 20080430
  Receipt Date: 20080430
  Transmission Date: 20081010
  Serious: Yes (Hospitalization)
  Sender: FDA-Public Use
  Company Number: None

PATIENT
  Age: 77 Year
  Sex: Female
  Weight: 81.6475 kg

DRUGS (1)
  1. PREDNISONE TAB [Suspect]
     Indication: MYASTHENIA GRAVIS
     Dosage: 10MG TO 40MG DAILY PO
     Route: 048
     Dates: start: 20071215, end: 20080505

REACTIONS (6)
  - AMNESIA [None]
  - CONFUSIONAL STATE [None]
  - CUSHINGOID [None]
  - DEMENTIA [None]
  - DIABETES MELLITUS [None]
  - PULMONARY THROMBOSIS [None]
